FAERS Safety Report 24361686 (Version 1)
Quarter: 2024Q3

REPORT INFORMATION
  Report Type: Spontaneous
  Country: GB (occurrence: GB)
  Receive Date: 20240925
  Receipt Date: 20240925
  Transmission Date: 20241016
  Serious: Yes (Other)
  Sender: ORGANON
  Company Number: None

PATIENT
  Age: 79 Year

DRUGS (12)
  1. MIRTAZAPINE [Suspect]
     Active Substance: MIRTAZAPINE
     Dosage: 30MG ON
  2. ASPIRIN [Suspect]
     Active Substance: ASPIRIN
     Dosage: 75MG OD
  3. AMLODIPINE [Concomitant]
     Active Substance: AMLODIPINE BESYLATE
     Dosage: 10 MG TABLETS ONE TO BE TAKEN EACH DAY
  4. COCODAMOL [Concomitant]
     Active Substance: ACETAMINOPHEN\CODEINE PHOSPHATE
     Dosage: 30 MG / 500 MG TABLETS ONE OR TWO TO BE TAKEN FOUR TIMES A DAY WHEN REQUIRED
  5. ATORVASTATIN [Concomitant]
     Active Substance: ATORVASTATIN
     Dosage: 80 MG TABLETS ONE TO BE TAKEN EACH DAY
  6. DOXAZOSIN [Concomitant]
     Active Substance: DOXAZOSIN MESYLATE
     Dosage: 8 MG TABLETS ONE TO BE TAKEN TWICE A DAY
  7. CHOLECALCIFEROL [Concomitant]
     Active Substance: CHOLECALCIFEROL
     Dosage: 400 UNIT / CALCIUM CARBONATE 1.25 G CHEWABLE TABLETS ONE TO BE TAKEN EACH DAY-THIS IS THE SAME AS CA
  8. SPIKEVAX XBB.1.5 [Concomitant]
     Dosage: COVID-19 MRNA VACCINE 0.1 MG / 1 ML DISPERSION FOR INJECTION MULTIDOSE VIALS 0.5 ML INTRAMUSCULAR 0.
     Route: 030
     Dates: start: 20240430, end: 20240430
  9. OMEPRAZOLE [Concomitant]
     Active Substance: OMEPRAZOLE
     Dosage: 20 MG GASTRO-RESISTANT CAPSULES ONE TO BE TAKEN EACH DAY
  10. SOTALOL [Concomitant]
     Active Substance: SOTALOL\SOTALOL HYDROCHLORIDE
     Dosage: 80 MG TABLETS ONE TO BE TAKEN TWICE A DAY
  11. SPIRIVA RESPIMAT [Concomitant]
     Active Substance: TIOTROPIUM BROMIDE
     Dosage: 2.5 MICROGRAMS / DOSE INHALATION SOLUTION CARTRIDGE WITH DEVICE TWOPUFFS TO BE INHALED ONCE DAILY
  12. RAMIPRIL [Concomitant]
     Active Substance: RAMIPRIL
     Dosage: 10 MG CAPSULES ONE TO BE TAKEN EACH DAY

REACTIONS (1)
  - Gastrointestinal haemorrhage [Unknown]
